FAERS Safety Report 7438152-1 (Version None)
Quarter: 2011Q2

REPORT INFORMATION
  Report Type: 
  Country: None (occurrence: None)
  Receive Date: 20110421
  Receipt Date: 20110421
  Transmission Date: 20111010
  Serious: No
  Sender: FDA-Public Use
  Company Number: None

PATIENT

DRUGS (2)
  1. TRIAZOLAM [Suspect]
  2. TRIAZOLAM [Suspect]

REACTIONS (1)
  - TREATMENT FAILURE [None]
